FAERS Safety Report 5408419-7 (Version None)
Quarter: 2007Q3

REPORT INFORMATION
  Report Type: 
  Country: None (occurrence: None)
  Receive Date: 20070806
  Receipt Date: 20070725
  Transmission Date: 20080115
  Serious: Yes (Hospitalization)
  Sender: FDA-Public Use
  Company Number: 2007BI007184

PATIENT
  Age: 52 Year
  Sex: Male
  Weight: 104.3273 kg

DRUGS (8)
  1. AVONEX [Suspect]
     Indication: MULTIPLE SCLEROSIS
     Dosage: 30 UG;QW;IM
     Route: 030
     Dates: start: 19990101, end: 20030101
  2. AVONEX [Suspect]
     Indication: MULTIPLE SCLEROSIS
     Dosage: 30 UG;QW;IM
     Route: 030
     Dates: start: 20030101, end: 20070101
  3. NORVASC [Concomitant]
  4. LABETALOL HCL [Concomitant]
  5. HYZAAR [Concomitant]
  6. ELAVIL [Concomitant]
  7. GLUCOPHAGE [Concomitant]
  8. COUMADIN [Concomitant]

REACTIONS (4)
  - DEEP VEIN THROMBOSIS [None]
  - SPINAL DISORDER [None]
  - THROMBOSIS [None]
  - TYPE 2 DIABETES MELLITUS [None]
